FAERS Safety Report 5197678-4 (Version None)
Quarter: 2006Q4

REPORT INFORMATION
  Report Type: 
  Country: None (occurrence: None)
  Receive Date: 20061227
  Receipt Date: 20061213
  Transmission Date: 20070319
  Serious: Yes (Hospitalization)
  Sender: FDA-Public Use
  Company Number: 2006144986

PATIENT
  Age: 73 Year
  Sex: Male
  Weight: 53.7 kg

DRUGS (13)
  1. ZOLOFT [Suspect]
     Indication: DEPRESSION
     Dosage: 50 MG (1 IN 1 D), ORAL
     Route: 048
     Dates: start: 20061031, end: 20061109
  2. MILNACIPRAN HYDROCHLORIDE (MILANCIPRAN HYDROCHLORIDE) [Concomitant]
  3. FLUVOXAMINE MALEATE [Concomitant]
  4. ESTAZOLAM [Concomitant]
  5. QUAZEPAM [Concomitant]
  6. RUEFRIEN (AZULENE, LEVOGLUTAMIDE) [Concomitant]
  7. DOMPERIDONE (DOMPERIDONE) [Concomitant]
  8. DISTIGMINE BROMIDE (DISTIGMINE BROMIDE) [Concomitant]
  9. NAFTOPIDIL (NAFTOPIDIL) [Concomitant]
  10. MAGNESIUM OXIDE (MAGNESIUM OXIDE) [Concomitant]
  11. BETHANECHOL CHLORIDE (BETANECHOL CHLORIDE) [Concomitant]
  12. SENNOSIDES (SENNOSIDE A+B) [Concomitant]
  13. ROHYPNOL (FLUNITRAZEPAM) [Concomitant]

REACTIONS (10)
  - ASTHENIA [None]
  - BACK PAIN [None]
  - CHEST PAIN [None]
  - CONDITION AGGRAVATED [None]
  - DEPRESSION [None]
  - DIZZINESS [None]
  - DYSPHAGIA [None]
  - FALL [None]
  - GAIT DISTURBANCE [None]
  - TREMOR [None]
